FAERS Safety Report 7627125-1 (Version None)
Quarter: 2011Q3

REPORT INFORMATION
  Report Type: 
  Country: None (occurrence: None)
  Receive Date: 20110714
  Receipt Date: 20110704
  Transmission Date: 20111222
  Serious: Yes (Death)
  Sender: FDA-Public Use
  Company Number: 1000021778

PATIENT
  Age: 80 Year
  Sex: Male
  Weight: 100 kg

DRUGS (2)
  1. MULTIPLE MEDICATIONS (NOS) (INHALANT) [Concomitant]
  2. ROFLUMILAST (ROFLUMILAST) (TABLETS) [Suspect]
     Indication: CHRONIC OBSTRUCTIVE PULMONARY DISEASE
     Dosage: 500 MCG (500 MG, 1 IN 1 D), ORAL
     Route: 048
     Dates: start: 20110329

REACTIONS (4)
  - PAIN [None]
  - SPINAL FRACTURE [None]
  - RESPIRATORY FAILURE [None]
  - OSTEOPOROSIS [None]
